FAERS Safety Report 21118635 (Version 1)
Quarter: 2022Q3

REPORT INFORMATION
  Report Type: Spontaneous
  Country: IT (occurrence: IT)
  Receive Date: 20220722
  Receipt Date: 20220722
  Transmission Date: 20221027
  Serious: Yes (Hospitalization, Other)
  Sender: FDA-Public Use
  Company Number: IT-BRISTOL-MYERS SQUIBB COMPANY-BMS-2019-033688

PATIENT
  Age: 64 Year
  Sex: Male

DRUGS (23)
  1. ETOPOSIDE [Suspect]
     Active Substance: ETOPOSIDE
     Indication: Non-Hodgkin^s lymphoma
     Dosage: UNK
     Route: 065
  2. DEXAMETHASONE [Suspect]
     Active Substance: DEXAMETHASONE
     Indication: Non-Hodgkin^s lymphoma
     Dosage: UNK
     Route: 065
  3. LENALIDOMIDE [Suspect]
     Active Substance: LENALIDOMIDE
     Indication: Non-Hodgkin^s lymphoma
     Dosage: UNK
     Route: 065
  4. FLUDARABINE [Suspect]
     Active Substance: FLUDARABINE PHOSPHATE
     Indication: Non-Hodgkin^s lymphoma
     Dosage: UNK
     Route: 065
  5. FLUDARABINE [Suspect]
     Active Substance: FLUDARABINE PHOSPHATE
     Dosage: UNK
     Route: 065
  6. IBRUTINIB [Suspect]
     Active Substance: IBRUTINIB
     Indication: Non-Hodgkin^s lymphoma
     Dosage: UNK
     Route: 065
  7. BORTEZOMIB [Suspect]
     Active Substance: BORTEZOMIB
     Indication: Non-Hodgkin^s lymphoma
     Dosage: UNK
     Route: 065
  8. CYCLOPHOSPHAMIDE [Suspect]
     Active Substance: CYCLOPHOSPHAMIDE
     Indication: Non-Hodgkin^s lymphoma
     Dosage: UNK
     Route: 065
  9. MELPHALAN [Suspect]
     Active Substance: MELPHALAN
     Indication: Non-Hodgkin^s lymphoma
     Dosage: UNK
     Route: 065
  10. MITOXANTRONE [Suspect]
     Active Substance: MITOXANTRONE HYDROCHLORIDE
     Indication: Non-Hodgkin^s lymphoma
     Dosage: UNK
     Route: 065
  11. MITOXANTRONE [Suspect]
     Active Substance: MITOXANTRONE HYDROCHLORIDE
     Dosage: UNK
     Route: 065
  12. CYTARABINE [Suspect]
     Active Substance: CYTARABINE
     Indication: Non-Hodgkin^s lymphoma
     Dosage: UNK
     Route: 065
  13. RITUXIMAB [Suspect]
     Active Substance: RITUXIMAB
     Indication: Mantle cell lymphoma
     Dosage: UNK
     Route: 065
  14. PLATINUM [Suspect]
     Active Substance: PLATINUM
     Indication: Non-Hodgkin^s lymphoma
     Dosage: UNK
     Route: 065
  15. FOTEMUSTINE [Suspect]
     Active Substance: FOTEMUSTINE
     Indication: Non-Hodgkin^s lymphoma
     Dosage: UNK
     Route: 065
  16. FOTEMUSTINE [Suspect]
     Active Substance: FOTEMUSTINE
     Dosage: UNK
     Route: 065
  17. PREDNISONE [Concomitant]
     Active Substance: PREDNISONE
     Indication: Product used for unknown indication
     Dosage: UNK
     Route: 065
  18. VINCRISTINE SULFATE [Concomitant]
     Active Substance: VINCRISTINE SULFATE
     Indication: Product used for unknown indication
     Dosage: UNK
     Route: 065
  19. VINCRISTINE SULFATE [Concomitant]
     Active Substance: VINCRISTINE SULFATE
     Dosage: UNK
     Route: 065
  20. VINCRISTINE SULFATE [Concomitant]
     Active Substance: VINCRISTINE SULFATE
     Dosage: UNK
     Route: 065
  21. CISPLATIN [Concomitant]
     Active Substance: CISPLATIN
     Indication: Product used for unknown indication
     Dosage: UNK
     Route: 065
  22. DOXORUBICIN HYDROCHLORIDE [Concomitant]
     Active Substance: DOXORUBICIN HYDROCHLORIDE
     Indication: Product used for unknown indication
     Dosage: UNK
     Route: 065
  23. BENDAMUSTINE HYDROCHLORIDE [Concomitant]
     Active Substance: BENDAMUSTINE HYDROCHLORIDE
     Indication: Product used for unknown indication
     Dosage: UNK
     Route: 065

REACTIONS (1)
  - Pulmonary tuberculosis [Recovering/Resolving]
